FAERS Safety Report 4911855-6 (Version None)
Quarter: 2006Q1

REPORT INFORMATION
  Report Type: 
  Country: None (occurrence: None)
  Receive Date: 20060215
  Receipt Date: 20060119
  Transmission Date: 20060701
  Serious: Yes (Other)
  Sender: FDA-Public Use
  Company Number: PHFR2006GB00604

PATIENT
  Sex: Female

DRUGS (5)
  1. TEGRETOL [Suspect]
     Indication: EPILEPSY
     Dosage: 200 MG, BID
     Route: 048
     Dates: start: 20041116, end: 20051201
  2. VALPROATE SODIUM [Concomitant]
     Route: 065
  3. FLUTICASONE PROPIONATE [Concomitant]
     Indication: ASTHMA
  4. TERBUTALINE [Concomitant]
     Indication: ASTHMA
     Dosage: PRN
  5. LOPERAMIDE [Suspect]
     Indication: DIARRHOEA

REACTIONS (17)
  - ABNORMAL SENSATION IN EYE [None]
  - ANXIETY [None]
  - DIARRHOEA [None]
  - DIZZINESS [None]
  - EYE PAIN [None]
  - EYE SWELLING [None]
  - FALL [None]
  - HALLUCINATION [None]
  - MALAISE [None]
  - NAUSEA [None]
  - OEDEMA MOUTH [None]
  - PRURITUS [None]
  - RASH GENERALISED [None]
  - SWOLLEN TONGUE [None]
  - THIRST [None]
  - VISION BLURRED [None]
  - WEIGHT DECREASED [None]
